FAERS Safety Report 21179655 (Version 1)
Quarter: 2022Q3

REPORT INFORMATION
  Report Type: Report from Study
  Country: US (occurrence: US)
  Receive Date: 20220805
  Receipt Date: 20220805
  Transmission Date: 20221026
  Serious: Yes (Other)
  Sender: FDA-Public Use
  Company Number: US-BAYER-2022A105950

PATIENT
  Sex: Male

DRUGS (3)
  1. STIVARGA [Suspect]
     Active Substance: REGORAFENIB
     Indication: Colorectal cancer
     Dosage: 160 MG, QD (FOR 21 DAYS THEN TAKE A 7 DAY BREAK)
     Route: 048
     Dates: start: 20220221
  2. LISINOPRIL [Concomitant]
     Active Substance: LISINOPRIL
     Dosage: UNK
  3. LONSURF [Concomitant]
     Active Substance: TIPIRACIL HYDROCHLORIDE\TRIFLURIDINE
     Dosage: UNK

REACTIONS (2)
  - Full blood count abnormal [Not Recovered/Not Resolved]
  - Neutrophil count decreased [None]
